FAERS Safety Report 7129386-4 (Version None)
Quarter: 2010Q4

REPORT INFORMATION
  Report Type: 
  Country: None (occurrence: None)
  Receive Date: 20101130
  Receipt Date: 20101123
  Transmission Date: 20110411
  Serious: No
  Sender: FDA-Public Use
  Company Number: US-PFIZER INC-2010156376

PATIENT
  Sex: Female

DRUGS (1)
  1. VANTIN [Suspect]
     Indication: SINUSITIS
     Dosage: 200 MG, 2X/DAY
     Route: 048
     Dates: start: 20101001, end: 20101111

REACTIONS (1)
  - TINNITUS [None]
